FAERS Safety Report 23704210 (Version 3)
Quarter: 2024Q3

REPORT INFORMATION
  Report Type: Spontaneous
  Country: US (occurrence: US)
  Receive Date: 20240404
  Receipt Date: 20240710
  Transmission Date: 20241017
  Serious: Yes (Hospitalization)
  Sender: JOHNSON AND JOHNSON
  Company Number: US-JNJFOC-20240340397

PATIENT
  Age: 43 Year
  Sex: Male
  Weight: 162.53 kg

DRUGS (1)
  1. ZYRTEC [Suspect]
     Active Substance: CETIRIZINE HYDROCHLORIDE
     Indication: Multiple allergies
     Route: 065
     Dates: start: 20240312, end: 20240312

REACTIONS (11)
  - Haematuria [Recovered/Resolved]
  - Blood pressure increased [Recovered/Resolved]
  - Hyponatraemia [Recovered/Resolved]
  - Cold sweat [Recovered/Resolved]
  - Thirst [Recovered/Resolved]
  - Dehydration [Recovered/Resolved]
  - Disturbance in attention [Recovered/Resolved]
  - Hypokinesia [Recovered/Resolved]
  - Urinary retention [Recovered/Resolved]
  - Hepatic steatosis [Unknown]
  - Obesity [Unknown]

NARRATIVE: CASE EVENT DATE: 20240312
